FAERS Safety Report 17398164 (Version 4)
Quarter: 2020Q1

REPORT INFORMATION
  Report Type: Spontaneous
  Country: CN (occurrence: CN)
  Receive Date: 20200210
  Receipt Date: 20200227
  Transmission Date: 20200409
  Serious: Yes (Hospitalization, Other)
  Sender: FDA-Public Use
  Company Number: CN-SA-2020SA031134

PATIENT
  Sex: Female

DRUGS (6)
  1. APROVEL [Suspect]
     Active Substance: IRBESARTAN
     Dosage: 0.5 MG, QD
     Route: 048
  2. APROVEL [Suspect]
     Active Substance: IRBESARTAN
     Indication: HYPERTENSION
     Dosage: 1 DF, QD
     Route: 048
     Dates: start: 2019, end: 20200203
  3. APROVEL [Suspect]
     Active Substance: IRBESARTAN
     Dosage: 1/3 TAB ONCE DAILY
     Route: 048
  4. APROVEL [Suspect]
     Active Substance: IRBESARTAN
     Dosage: 1 UNK
     Dates: start: 20200108
  5. ASPIRIN [ACETYLSALICYLIC ACID] [Concomitant]
     Active Substance: ASPIRIN
     Indication: CEREBRAL INFARCTION
  6. ASPIRIN [ACETYLSALICYLIC ACID] [Concomitant]
     Active Substance: ASPIRIN
     Indication: MYOCARDIAL INFARCTION
     Dosage: 100 MG, QD
     Route: 048

REACTIONS (11)
  - Blood pressure increased [Recovered/Resolved]
  - Muscular weakness [Unknown]
  - Cerebral haemorrhage [Unknown]
  - Palpitations [Recovered/Resolved]
  - Drug ineffective [Unknown]
  - Cerebral ischaemia [Recovered/Resolved]
  - Blood pressure increased [Recovered/Resolved]
  - Blood pressure fluctuation [Recovered/Resolved]
  - Headache [Recovered/Resolved]
  - Intentional product misuse [Unknown]
  - Muscular weakness [Recovered/Resolved]

NARRATIVE: CASE EVENT DATE: 20200108
